FAERS Safety Report 4468163-X (Version None)
Quarter: 2004Q4

REPORT INFORMATION
  Report Type: 
  Country: None (occurrence: None)
  Receive Date: 20041001
  Receipt Date: 20040916
  Transmission Date: 20050328
  Serious: Yes (Life-Threatening, Other)
  Sender: FDA-Public Use
  Company Number: C2003-1822.02

PATIENT
  Age: 13 Year
  Sex: Female

DRUGS (5)
  1. CYSTAGON [Suspect]
     Dosage: 1400MG/DAY ORAL,{ AGE 7-ONGOING
     Route: 048
  2. CYSTEAMINE EYE DROPS SIGMA TAU [Suspect]
     Dates: start: 19950301
  3. TACROLIMUS [Concomitant]
  4. MYCOPHENOLATE MOFETIL [Concomitant]
  5. PREDNISONE [Concomitant]

REACTIONS (2)
  - BENIGN INTRACRANIAL HYPERTENSION [None]
  - OPTIC DISC DISORDER [None]
